FAERS Safety Report 6578196-5 (Version None)
Quarter: 2010Q1

REPORT INFORMATION
  Report Type: 
  Country: None (occurrence: None)
  Receive Date: 20100211
  Receipt Date: 20100203
  Transmission Date: 20100710
  Serious: Yes (Hospitalization)
  Sender: FDA-Public Use
  Company Number: US-ABBOTT-10P-163-0624094-00

PATIENT
  Sex: Female
  Weight: 105.33 kg

DRUGS (17)
  1. DEPAKOTE ER [Suspect]
     Indication: BIPOLAR DISORDER
     Dates: start: 20030101, end: 20090221
  2. DEPAKOTE ER [Suspect]
     Dates: start: 20090301, end: 20090301
  3. DEPAKOTE ER [Suspect]
     Dates: start: 20090505, end: 20090616
  4. DIVALPROEX SODIUM [Suspect]
     Indication: BIPOLAR DISORDER
     Dates: start: 20090201, end: 20090301
  5. DIVALPROEX SODIUM [Suspect]
     Dates: start: 20090301, end: 20090505
  6. DIVALPROEX SODIUM [Suspect]
     Dates: start: 20090616, end: 20091218
  7. DIVALPROEX SODIUM [Suspect]
     Dates: start: 20091223
  8. HALDOL [Concomitant]
     Indication: ANXIETY
  9. KLONOPIN [Concomitant]
     Indication: ANXIETY
  10. RESTORIL [Concomitant]
     Indication: SLEEP DISORDER THERAPY
  11. BENADRYL [Concomitant]
     Indication: ANXIETY
  12. LOBETALOL [Concomitant]
     Indication: HYPERTENSION
  13. SIMVASTATIN [Concomitant]
     Indication: BLOOD CHOLESTEROL INCREASED
  14. COZAAR [Concomitant]
     Indication: HYPERTENSION
  15. FOLIC ACID [Concomitant]
     Indication: FOLATE DEFICIENCY
  16. VITAMIN D [Concomitant]
     Indication: HYPOVITAMINOSIS
  17. TYLENOL-500 [Concomitant]
     Indication: PAIN

REACTIONS (17)
  - ALOPECIA [None]
  - BALANCE DISORDER [None]
  - CLOSTRIDIAL INFECTION [None]
  - COLITIS [None]
  - CYSTITIS [None]
  - DIARRHOEA [None]
  - DRUG TOXICITY [None]
  - ILEUS PARALYTIC [None]
  - IRRITABILITY [None]
  - MANIA [None]
  - MEDICATION RESIDUE [None]
  - MIGRAINE WITH AURA [None]
  - PARKINSONISM [None]
  - TREMOR [None]
  - TYPE 1 DIABETES MELLITUS [None]
  - URINARY RETENTION [None]
  - WEIGHT INCREASED [None]
